FAERS Safety Report 8075754-6 (Version None)
Quarter: 2012Q1

REPORT INFORMATION
  Report Type: 
  Country: None (occurrence: None)
  Receive Date: 20120127
  Receipt Date: 20110824
  Transmission Date: 20120608
  Serious: Yes (Hospitalization)
  Sender: FDA-Public Use
  Company Number: US-ABBOTT-11P-163-0849095-00

PATIENT
  Sex: Male

DRUGS (2)
  1. HUMIRA [Suspect]
     Indication: CROHN'S DISEASE
     Dates: start: 20090101, end: 20100601
  2. HUMIRA [Suspect]
     Dates: start: 20110701

REACTIONS (2)
  - GASTROINTESTINAL NECROSIS [None]
  - HOSPITALISATION [None]
